FAERS Safety Report 4280337-X (Version None)
Quarter: 2004Q1

REPORT INFORMATION
  Report Type: 
  Country: None (occurrence: None)
  Receive Date: 20040127
  Receipt Date: 20040119
  Transmission Date: 20041129
  Serious: No
  Sender: FDA-Public Use
  Company Number: EM2004-0025

PATIENT
  Age: 59 Year
  Sex: Male

DRUGS (2)
  1. PROLEUKIN [Suspect]
     Indication: MALIGNANT MELANOMA
     Dosage: 54 MIU, INTRALESIONAL
     Route: 026
  2. TEMOZOLAMIDE (TEMOZOLOMIDE) [Concomitant]

REACTIONS (2)
  - DISEASE PROGRESSION [None]
  - INJECTION SITE ABSCESS [None]
